FAERS Safety Report 5693753-6 (Version None)
Quarter: 2008Q2

REPORT INFORMATION
  Report Type: 
  Country: None (occurrence: None)
  Receive Date: 20080403
  Receipt Date: 20080401
  Transmission Date: 20081010
  Serious: Yes (Hospitalization)
  Sender: FDA-Public Use
  Company Number: FR-WYE-G01329708

PATIENT
  Sex: Male
  Weight: 56 kg

DRUGS (12)
  1. PIPERACILLIN SODIUM AND TAZOBACTAM SODIUM [Suspect]
     Indication: STAPHYLOCOCCAL SEPSIS
     Dosage: 12 G TOTAL DAILY
     Route: 042
     Dates: start: 20080223, end: 20080303
  2. TACROLIMUS [Concomitant]
     Dosage: UNKNOWN
     Dates: start: 20080216
  3. INSULIN [Concomitant]
     Dosage: UNKNOWN
  4. ASPIRIN [Concomitant]
     Dosage: 75 MG (FREQUENCY UNKNOWN)
  5. VANCOMYCIN [Concomitant]
     Indication: STAPHYLOCOCCAL SEPSIS
     Dosage: UNKNOWN
     Dates: start: 20080223, end: 20080225
  6. CORTANCYL [Concomitant]
     Dosage: 10 MG (FREQUENCY UNKNOWN)
  7. DI-ANTALVIC [Concomitant]
     Dosage: UNKNOWN
  8. LEXOMIL [Concomitant]
     Dosage: UNKNOWN
  9. VITAMIN K1 [Concomitant]
     Dosage: UNKNOWN
  10. VALACYCLOVIR [Concomitant]
     Dosage: 6 TABLETS TOTAL DAILY
  11. INIPOMP [Suspect]
     Route: 048
     Dates: start: 20080214, end: 20080303
  12. CALCIPARINE [Concomitant]
     Dosage: UNKNOWN

REACTIONS (4)
  - AGRANULOCYTOSIS [None]
  - CONDITION AGGRAVATED [None]
  - MYELOID MATURATION ARREST [None]
  - THROMBOCYTOPENIA [None]
